FAERS Safety Report 5465571-5 (Version None)
Quarter: 2007Q3

REPORT INFORMATION
  Report Type: 
  Country: None (occurrence: None)
  Receive Date: 20070924
  Receipt Date: 19980612
  Transmission Date: 20080115
  Serious: Yes (Life-Threatening, Hospitalization)
  Sender: FDA-Public Use
  Company Number: FR-PFIZER INC-2006121879

PATIENT
  Sex: Male

DRUGS (3)
  1. IRINOTECAN HCL [Suspect]
     Indication: COLON CANCER
     Dosage: DAILY DOSE:275MG
     Route: 042
     Dates: start: 19980605, end: 19980605
  2. FOLINIC ACID [Suspect]
     Indication: COLON CANCER
     Route: 042
     Dates: start: 19980605, end: 19980606
  3. FLUOROURACIL [Suspect]
     Indication: COLON CANCER
     Dosage: DAILY DOSE:1530MG
     Route: 042
     Dates: start: 19980605, end: 19980606

REACTIONS (2)
  - DIARRHOEA [None]
  - MEGACOLON [None]
